FAERS Safety Report 6125996-1 (Version None)
Quarter: 2009Q1

REPORT INFORMATION
  Report Type: 
  Country: None (occurrence: None)
  Receive Date: 20090320
  Receipt Date: 20090312
  Transmission Date: 20090719
  Serious: Yes (Death)
  Sender: FDA-Public Use
  Company Number: DE-ELI_LILLY_AND_COMPANY-DE200903003679

PATIENT
  Age: 52 Year
  Sex: Male

DRUGS (4)
  1. BYETTA [Suspect]
     Indication: DIABETES MELLITUS
     Dosage: 10 UG, UNKNOWN
     Route: 058
     Dates: start: 20080825
  2. BYETTA [Suspect]
     Dosage: UNK, UNKNOWN
     Route: 065
     Dates: start: 20090225
  3. METFORMIN HCL [Concomitant]
     Dosage: 1000
     Route: 065
  4. ATACAND HCT [Concomitant]
     Dosage: 16/12.5, DAILY (1/D)
     Route: 065

REACTIONS (3)
  - NAUSEA [None]
  - SUDDEN CARDIAC DEATH [None]
  - WEIGHT DECREASED [None]
